FAERS Safety Report 14900490 (Version 2)
Quarter: 2018Q2

REPORT INFORMATION
  Report Type: Spontaneous
  Country: US (occurrence: US)
  Receive Date: 20180516
  Receipt Date: 20180622
  Transmission Date: 20180711
  Serious: Yes (Hospitalization, Other)
  Sender: FDA-Public Use
  Company Number: US-ABBVIE-18P-163-2351749-00

PATIENT
  Age: 90 Year
  Sex: Male

DRUGS (4)
  1. TEMAZEPAM. [Concomitant]
     Active Substance: TEMAZEPAM
     Indication: PRODUCT USED FOR UNKNOWN INDICATION
     Dates: end: 2018
  2. PROZAC [Suspect]
     Active Substance: FLUOXETINE HYDROCHLORIDE
     Route: 048
     Dates: start: 20180503
  3. PROZAC [Suspect]
     Active Substance: FLUOXETINE HYDROCHLORIDE
     Indication: DEPRESSION
     Route: 048
  4. LUPRON DEPOT [Suspect]
     Active Substance: LEUPROLIDE ACETATE
     Indication: PROSTATE CANCER
     Dosage: 22.5 MG/ 3 MOS.
     Route: 030
     Dates: start: 2017

REACTIONS (23)
  - Tremor [Unknown]
  - Depression [Recovered/Resolved]
  - Hot flush [Not Recovered/Not Resolved]
  - Aggression [Not Recovered/Not Resolved]
  - Fatigue [Not Recovered/Not Resolved]
  - Oedema [Unknown]
  - Dysstasia [Unknown]
  - Irritability [Not Recovered/Not Resolved]
  - Product quality issue [Unknown]
  - Drug withdrawal syndrome [Unknown]
  - Dehydration [Not Recovered/Not Resolved]
  - Fall [Unknown]
  - Acne [Not Recovered/Not Resolved]
  - Blood sodium decreased [Unknown]
  - Aggression [Not Recovered/Not Resolved]
  - Serotonin syndrome [Recovered/Resolved]
  - Cerebrovascular accident [Unknown]
  - Blood pressure increased [Unknown]
  - Urinary retention [Unknown]
  - Vomiting [Unknown]
  - Pruritus [Unknown]
  - Orthostatic hypertension [Recovered/Resolved]
  - Depression [Not Recovered/Not Resolved]

NARRATIVE: CASE EVENT DATE: 201711
